FAERS Safety Report 6613754-0 (Version None)
Quarter: 2010Q1

REPORT INFORMATION
  Report Type: 
  Country: None (occurrence: None)
  Receive Date: 20100225
  Receipt Date: 20090610
  Transmission Date: 20100710
  Serious: Yes (Other)
  Sender: FDA-Public Use
  Company Number: 639101

PATIENT
  Sex: 0

DRUGS (2)
  1. ACCUTANE [Suspect]
     Indication: ACNE
     Dosage: 20 MG ORAL
     Route: 048
     Dates: start: 19890615, end: 20051230
  2. AMNESTEEM [Suspect]
     Indication: ACNE
     Dates: start: 20051218, end: 20060115

REACTIONS (2)
  - PREGNANCY [None]
  - STRESS [None]
